FAERS Safety Report 6394850-2 (Version None)
Quarter: 2009Q4

REPORT INFORMATION
  Report Type: 
  Country: None (occurrence: None)
  Receive Date: 20091009
  Receipt Date: 20091005
  Transmission Date: 20100525
  Serious: Yes (Death, Other)
  Sender: FDA-Public Use
  Company Number: PHHY2009GB42769

PATIENT
  Age: 65 Year
  Sex: Female
  Weight: 70 kg

DRUGS (18)
  1. OCTREOTIDE ACETATE [Suspect]
     Indication: INTESTINAL OBSTRUCTION
     Dosage: 800 MCG
     Route: 058
     Dates: start: 20090726
  2. OCTREOTIDE ACETATE [Suspect]
     Dosage: 300-600 MCG
     Route: 058
     Dates: end: 20090822
  3. CYCLIZINE [Concomitant]
     Dosage: 50 MG, PRN
     Route: 058
  4. DALTEPARIN [Concomitant]
     Indication: PROPHYLAXIS
     Dosage: 5000 IU, UNK
     Route: 058
  5. DEXAMETHASONE 0.5MG TAB [Concomitant]
     Indication: NEOPLASM SWELLING
     Dosage: 8 MG, QD
     Route: 030
  6. DIAMORPHINE [Concomitant]
     Dosage: 10 MG, QD
  7. HALOPERIDOL [Concomitant]
     Dosage: 2.5 MG, QD
     Route: 058
  8. HYOSCINE HBR HYT [Concomitant]
     Dosage: 3.125 MG, PRN
  9. LANSOPRAZOLE [Concomitant]
     Indication: DYSPEPSIA
     Dosage: 30 MG, UNK
     Route: 048
  10. LANSOPRAZOLE [Concomitant]
     Indication: PROPHYLAXIS
  11. LEVOMEPROMAZINE [Concomitant]
     Route: 058
  12. METOCLOPRAMIDE [Concomitant]
     Indication: ANTIEMETIC SUPPORTIVE CARE
     Dosage: 30 MG, QD
     Route: 058
  13. MIDAZOLAM HCL [Concomitant]
     Dosage: 1 DF, UNK
     Route: 058
  14. MORPHINE [Concomitant]
     Dosage: 2.5 MG, PRN
     Route: 058
  15. NYSTATIN [Concomitant]
     Indication: ORAL CANDIDIASIS
     Route: 048
  16. OMEPRAZOLE [Concomitant]
     Dosage: 20 MG, QD
  17. ACETAMINOPHEN [Concomitant]
     Dosage: UNK
  18. PEPPERMINT WATER [Concomitant]
     Dosage: 5 ML, UNK
     Route: 048

REACTIONS (5)
  - DEATH [None]
  - PAROTID GLAND ENLARGEMENT [None]
  - SALIVARY GLAND PAIN [None]
  - SWELLING FACE [None]
  - TENDERNESS [None]
